FAERS Safety Report 25140497 (Version 1)
Quarter: 2025Q1

REPORT INFORMATION
  Report Type: Spontaneous
  Country: US (occurrence: US)
  Receive Date: 20250331
  Receipt Date: 20250331
  Transmission Date: 20250408
  Serious: Yes (Hospitalization, Other)
  Sender: PFIZER
  Company Number: US-PFIZER INC-PV202500036042

PATIENT
  Age: 41 Year
  Sex: Male
  Weight: 77 kg

DRUGS (2)
  1. FENTANYL CITRATE [Suspect]
     Active Substance: FENTANYL CITRATE
     Indication: Substance use disorder
     Route: 058
  2. XYLAZINE [Suspect]
     Active Substance: XYLAZINE
     Indication: Substance use disorder

REACTIONS (3)
  - Skin ulcer [Recovering/Resolving]
  - Withdrawal syndrome [Recovering/Resolving]
  - Drug abuse [Unknown]
